FAERS Safety Report 5165267-3 (Version None)
Quarter: 2006Q4

REPORT INFORMATION
  Report Type: 
  Country: None (occurrence: None)
  Receive Date: 20061124
  Receipt Date: 20061113
  Transmission Date: 20070319
  Serious: Yes (Hospitalization, Other)
  Sender: FDA-Public Use
  Company Number: 2006140832

PATIENT
  Age: 63 Year
  Sex: Male

DRUGS (2)
  1. SERTRALINE [Suspect]
     Indication: DEPRESSION
  2. TRAZODONE HCL [Concomitant]
     Indication: DEPRESSION

REACTIONS (22)
  - AKATHISIA [None]
  - ANXIETY [None]
  - ASTHENIA [None]
  - BLOOD CHLORIDE DECREASED [None]
  - BLOOD GLUCOSE INCREASED [None]
  - BLOOD OSMOLARITY DECREASED [None]
  - DEHYDRATION [None]
  - DUODENAL ULCER [None]
  - EROSIVE DUODENITIS [None]
  - GASTRITIS [None]
  - HYPERVENTILATION [None]
  - HYPOKALAEMIA [None]
  - HYPONATRAEMIA [None]
  - HYPOREFLEXIA [None]
  - MOTOR DYSFUNCTION [None]
  - NERVOUS SYSTEM DISORDER [None]
  - PANIC REACTION [None]
  - PSYCHOMOTOR HYPERACTIVITY [None]
  - STRESS [None]
  - TREMOR [None]
  - URINE SODIUM DECREASED [None]
  - VOMITING [None]
